FAERS Safety Report 10005157 (Version 3)
Quarter: 2014Q1

REPORT INFORMATION
  Report Type: Report from Study
  Country: US (occurrence: US)
  Receive Date: 20140312
  Receipt Date: 20140331
  Transmission Date: 20141002
  Serious: Yes (Death, Hospitalization)
  Sender: FDA-Public Use
  Company Number: US-ACTELION-A-US2014-95688

PATIENT
  Age: 74 Year
  Sex: Female

DRUGS (3)
  1. VELETRI [Suspect]
     Indication: PULMONARY ARTERIAL HYPERTENSION
     Dosage: 10 NG/KG, PER MIN
     Route: 042
     Dates: start: 201110, end: 20140310
  2. VELETRI [Suspect]
     Dosage: 1.5 UNK, UNK
     Route: 041
  3. SILDENAFIL [Concomitant]

REACTIONS (7)
  - Death [Fatal]
  - Lung disorder [Unknown]
  - Splenomegaly [Unknown]
  - Confusional state [Unknown]
  - Hepatomegaly [Unknown]
  - Right ventricular failure [Not Recovered/Not Resolved]
  - Nasopharyngitis [Unknown]
